FAERS Safety Report 5033948-8 (Version None)
Quarter: 2006Q2

REPORT INFORMATION
  Report Type: 
  Country: None (occurrence: None)
  Receive Date: 20060623
  Receipt Date: 20060615
  Transmission Date: 20061013
  Serious: Yes (Hospitalization)
  Sender: FDA-Public Use
  Company Number: US-MERCK-0606USA02857

PATIENT
  Sex: Female

DRUGS (1)
  1. PRIMAXIN [Suspect]
     Indication: OSTEOMYELITIS
     Route: 042
     Dates: start: 20060501, end: 20060501

REACTIONS (1)
  - DRUG INEFFECTIVE [None]
